FAERS Safety Report 9141081 (Version 2)
Quarter: 2013Q2

REPORT INFORMATION
  Report Type: Spontaneous
  Country: US (occurrence: US)
  Receive Date: 20130305
  Receipt Date: 20130628
  Transmission Date: 20140414
  Serious: Yes (Hospitalization)
  Sender: FDA-Public Use
  Company Number: US-B.I. PHARMACEUTICALS,INC./RIDGEFIELD-2013-BI-05592BP

PATIENT
  Sex: Female
  Weight: 74.84 kg

DRUGS (12)
  1. PRADAXA [Suspect]
     Indication: ATRIAL FIBRILLATION
     Dosage: 75 MG
     Dates: start: 20110119, end: 20110322
  2. AMBIEN [Concomitant]
     Dosage: 5 MG
  3. GLIPIZIDE [Concomitant]
     Dosage: 10 MG
  4. INTEGRA [Concomitant]
     Dosage: 125 MG
  5. JANUVIA [Concomitant]
     Dosage: 50 MG
  6. LIPITOR [Concomitant]
     Dosage: 10 MG
  7. METOPROLOL [Concomitant]
     Dosage: 25 MG
  8. MULTAQ [Concomitant]
     Dosage: 400 MG
  9. PROTONIX [Concomitant]
     Dosage: 40 MG
  10. SODIUM BICARBONATE [Concomitant]
  11. FUROSEMIDE [Concomitant]
     Dosage: 20 MG
  12. TRAMADOL [Concomitant]
     Indication: PAIN

REACTIONS (2)
  - Lower gastrointestinal haemorrhage [Recovered/Resolved]
  - Haemorrhagic anaemia [Unknown]
